FAERS Safety Report 7669915 (Version 3)
Quarter: 2017Q4

REPORT INFORMATION
  Report Type: Spontaneous
  Country: GB (occurrence: GB)
  Receive Date: 20101116
  Receipt Date: 20171205
  Transmission Date: 20180321
  Serious: Yes (Death, Life-Threatening, Hospitalization, Disabling, Congenital Anomaly, Other)
  Sender: FDA-Public Use
  Company Number: GB-RANBAXY-2010R1-39341

PATIENT
  Sex: Female

DRUGS (4)
  1. INFLUENZA VIRUS [Suspect]
     Active Substance: INFLUENZA VIRUS VACCINE
     Indication: PROPHYLAXIS
     Dosage: 1 DF, 1 / DAYS, 1 INJECTION
     Route: 065
     Dates: start: 200910, end: 200910
  2. CORTISONE [Suspect]
     Active Substance: CORTISONE\HYDROCORTISONE
     Indication: PRODUCT USED FOR UNKNOWN INDICATION
     Dosage: UNK
     Route: 065
  3. CLARITHROMYCIN. [Suspect]
     Active Substance: CLARITHROMYCIN
     Indication: PRODUCT USED FOR UNKNOWN INDICATION
     Dosage: UNK
     Route: 065
  4. PANDEMRIX [Suspect]
     Active Substance: INFLUENZA VIRUS VACCINE, SWINE
     Indication: PROPHYLAXIS
     Dosage: 1 DF, 1 DAYS, 1 INJECTION
     Route: 065
     Dates: start: 200911, end: 200911

REACTIONS (15)
  - Asthma [Fatal]
  - Rhinitis perennial [Fatal]
  - Condition aggravated [Fatal]
  - Cough [Fatal]
  - Rhinorrhoea [Fatal]
  - Hypersensitivity [Fatal]
  - Sneezing [Fatal]
  - Rhinitis [Fatal]
  - Insomnia [Fatal]
  - Dyspnoea [Fatal]
  - Arthralgia [Fatal]
  - Obstructive airways disorder [Fatal]
  - Ill-defined disorder [Unknown]
  - Fatigue [Fatal]
  - Wheezing [Fatal]

NARRATIVE: CASE EVENT DATE: 2009
